FAERS Safety Report 26150727 (Version 1)
Quarter: 2025Q4

REPORT INFORMATION
  Report Type: Spontaneous
  Country: US (occurrence: None)
  Receive Date: 20251211
  Receipt Date: 20251211
  Transmission Date: 20260117
  Serious: No
  Sender: FDA-CTU
  Company Number: None

PATIENT

DRUGS (1)
  1. ENTYVIO PEN [Suspect]
     Active Substance: VEDOLIZUMAB

REACTIONS (1)
  - Device allergy [None]

NARRATIVE: CASE EVENT DATE: 20251211
